FAERS Safety Report 24079730 (Version 1)
Quarter: 2024Q3

REPORT INFORMATION
  Report Type: Spontaneous
  Country: BE (occurrence: BE)
  Receive Date: 20240711
  Receipt Date: 20240711
  Transmission Date: 20241016
  Serious: Yes (Other)
  Sender: PFIZER
  Company Number: BE-PFIZER INC-PV202400089784

PATIENT
  Age: 59 Year
  Sex: Female

DRUGS (2)
  1. TRASTUZUMAB [Suspect]
     Active Substance: TRASTUZUMAB
     Indication: Breast neoplasm
     Dosage: 600 MG, EVERY 3 WEEKS
  2. TAXOL [Concomitant]
     Active Substance: PACLITAXEL
     Indication: Breast neoplasm
     Dosage: 80 MG/M2, WEEKLY X 12

REACTIONS (1)
  - Cardiotoxicity [Unknown]
